FAERS Safety Report 6442894-4 (Version None)
Quarter: 2009Q4

REPORT INFORMATION
  Report Type: 
  Country: None (occurrence: None)
  Receive Date: 20091117
  Receipt Date: 20091112
  Transmission Date: 20100525
  Serious: Yes (Other)
  Sender: FDA-Public Use
  Company Number: TR-BRISTOL-MYERS SQUIBB COMPANY-14840201

PATIENT
  Age: 57 Year
  Sex: Male

DRUGS (2)
  1. HYDROXYUREA [Suspect]
     Dosage: INCREASED TO 2G/DAY
  2. ACETYLSALICYLIC ACID [Suspect]

REACTIONS (1)
  - PERICARDIAL HAEMORRHAGE [None]
